FAERS Safety Report 21343887 (Version 2)
Quarter: 2022Q3

REPORT INFORMATION
  Report Type: Spontaneous
  Country: US (occurrence: US)
  Receive Date: 20220916
  Receipt Date: 20220920
  Transmission Date: 20221026
  Serious: Yes (Other)
  Sender: FDA-Public Use
  Company Number: US-PFIZER INC-202201156578

PATIENT
  Age: 58 Year
  Sex: Male
  Weight: 81.65 kg

DRUGS (2)
  1. LEVOXYL [Suspect]
     Active Substance: LEVOTHYROXINE SODIUM
     Dosage: 125 UG
  2. LEVOXYL [Suspect]
     Active Substance: LEVOTHYROXINE SODIUM
     Dosage: 112 UG

REACTIONS (5)
  - Myocardial infarction [Unknown]
  - Malaise [Unknown]
  - Thyroid disorder [Unknown]
  - Chest discomfort [Unknown]
  - Oropharyngeal discomfort [Unknown]
